FAERS Safety Report 24254881 (Version 2)
Quarter: 2024Q3

REPORT INFORMATION
  Report Type: Spontaneous
  Country: AU (occurrence: AU)
  Receive Date: 20240827
  Receipt Date: 20240903
  Transmission Date: 20241016
  Serious: Yes (Other)
  Sender: ASTELLAS
  Company Number: AU-ASTELLAS-AER-2024-020540

PATIENT
  Age: 52 Year
  Sex: Female

DRUGS (2)
  1. FEZOLINETANT [Suspect]
     Active Substance: FEZOLINETANT
     Indication: Breast cancer
     Dosage: FOR A MONTH
     Route: 065
  2. FEZOLINETANT [Suspect]
     Active Substance: FEZOLINETANT
     Dosage: RESTARTED DOSE
     Route: 065

REACTIONS (2)
  - Haemorrhage [Recovered/Resolved]
  - Off label use [Unknown]
